FAERS Safety Report 8881959 (Version 1)
Quarter: 2012Q4

REPORT INFORMATION
  Report Type: 
  Country: CA (occurrence: CA)
  Receive Date: 20121102
  Receipt Date: 20121102
  Transmission Date: 20130627
  Serious: Yes (Other)
  Sender: FDA-Public Use
  Company Number: PHHY2007CA011777

PATIENT
  Age: 46 Year
  Sex: Male

DRUGS (1)
  1. ZOMETA [Suspect]
     Indication: LUNG NEOPLASM MALIGNANT
     Dosage: 4 mg,every 4 weeks
     Route: 042
     Dates: start: 20070122, end: 20070226

REACTIONS (2)
  - General physical health deterioration [Unknown]
  - Blood calcium decreased [Unknown]
